FAERS Safety Report 6815095-5 (Version None)
Quarter: 2010Q3

REPORT INFORMATION
  Report Type: 
  Country: None (occurrence: None)
  Receive Date: 20100702
  Receipt Date: 20100625
  Transmission Date: 20110219
  Serious: Yes (Hospitalization)
  Sender: FDA-Public Use
  Company Number: US-WATSON-2010-08512

PATIENT
  Age: 16 Year
  Sex: Male

DRUGS (3)
  1. MINOCYCLINE HCL [Suspect]
     Indication: ACNE
     Dosage: 100 MG, DAILY
     Route: 048
     Dates: start: 20100217, end: 20100315
  2. MINOCYCLINE HCL [Suspect]
     Dosage: 100 MG, DAILY
     Route: 048
     Dates: start: 20091101, end: 20091201
  3. MINOCYCLINE HCL [Suspect]
     Dosage: 100 MG, DAILY
     Route: 048
     Dates: start: 20091016, end: 20091031

REACTIONS (6)
  - COLITIS ULCERATIVE [None]
  - FATIGUE [None]
  - RECTAL HAEMORRHAGE [None]
  - SCAR [None]
  - SINUSITIS [None]
  - SKIN DISCOLOURATION [None]
